FAERS Safety Report 13486483 (Version 1)
Quarter: 2017Q2

REPORT INFORMATION
  Report Type: Spontaneous
  Country: US (occurrence: US)
  Receive Date: 20170426
  Receipt Date: 20170426
  Transmission Date: 20170830
  Serious: Yes (Life-Threatening, Other)
  Sender: FDA-Public Use
  Company Number: US-JNJFOC-20170422985

PATIENT
  Age: 46 Year
  Sex: Male

DRUGS (8)
  1. LEVOFLOXACIN. [Concomitant]
     Active Substance: LEVOFLOXACIN
     Indication: PROPHYLAXIS
     Route: 065
  2. CISPLATIN. [Suspect]
     Active Substance: CISPLATIN
     Indication: CHEMOTHERAPY
     Dosage: COMPLETED A CYCLE
     Route: 065
  3. DEXAMETHASONE. [Concomitant]
     Active Substance: DEXAMETHASONE
     Indication: CHEMOTHERAPY
     Dosage: COMPLETED A CYCLE
     Route: 065
  4. MESNA. [Suspect]
     Active Substance: MESNA
     Indication: CHEMOTHERAPY
     Route: 065
  5. CYCLOPHOSPHAMIDE. [Suspect]
     Active Substance: CYCLOPHOSPHAMIDE
     Indication: CHEMOTHERAPY
     Dosage: COMPLETED A CYCLE
     Route: 065
  6. ETOPOSIDE. [Suspect]
     Active Substance: ETOPOSIDE
     Indication: CHEMOTHERAPY
     Dosage: COMPLETED A CYCLE
     Route: 065
  7. ADRIAMYCIN [Suspect]
     Active Substance: DOXORUBICIN HYDROCHLORIDE
     Indication: CHEMOTHERAPY
     Dosage: COMPLETED A CYCLE
     Route: 065
  8. ACYCLOVIR. [Concomitant]
     Active Substance: ACYCLOVIR
     Indication: PROPHYLAXIS
     Route: 065

REACTIONS (11)
  - Vomiting [Unknown]
  - Hyponatraemia [Unknown]
  - Dysphagia [Unknown]
  - Oedema peripheral [Unknown]
  - Hypophosphataemia [Unknown]
  - Odynophagia [Unknown]
  - Pyrexia [Unknown]
  - Pancytopenia [Unknown]
  - Fusarium infection [Unknown]
  - Chills [Unknown]
  - Mucosal inflammation [Unknown]
